FAERS Safety Report 9351225 (Version 2)
Quarter: 2013Q3

REPORT INFORMATION
  Report Type: Spontaneous
  Country: US (occurrence: US)
  Receive Date: 20130617
  Receipt Date: 20130924
  Transmission Date: 20140515
  Serious: Yes (Hospitalization)
  Sender: FDA-Public Use
  Company Number: US-BAYER-2013-072173

PATIENT
  Age: 19 Year
  Sex: Female

DRUGS (9)
  1. YAZ [Suspect]
     Dosage: UNK
     Dates: start: 2008, end: 201104
  2. MINOCYCLINE [Concomitant]
     Indication: ACNE
  3. ALBUTEROL [Concomitant]
  4. FIORICET [Concomitant]
  5. COMPAZINE [Concomitant]
  6. PERCOCET [OXYCODONE HYDROCHLORIDE,OXYCODONE TEREPHTHALATE,PARACETA [Concomitant]
  7. COLACE [Concomitant]
  8. MIRALAX [Concomitant]
  9. BENADRYL [DIPHENHYDRAMINE,PARACETAMOL,PHENYLPROPANOLAMINE HYDROCHL [Concomitant]

REACTIONS (9)
  - Intracranial venous sinus thrombosis [Recovering/Resolving]
  - Jugular vein thrombosis [Recovering/Resolving]
  - Deep vein thrombosis [None]
  - Anxiety [None]
  - Anhedonia [None]
  - Injury [Recovering/Resolving]
  - Pain [Recovering/Resolving]
  - Emotional distress [None]
  - Psychological trauma [None]
